FAERS Safety Report 13131966 (Version 2)
Quarter: 2017Q1

REPORT INFORMATION
  Report Type: Report from Study
  Country: CO (occurrence: CO)
  Receive Date: 20170119
  Receipt Date: 20170221
  Transmission Date: 20170428
  Serious: Yes (Hospitalization)
  Sender: FDA-Public Use
  Company Number: PHHY2016CO144769

PATIENT
  Age: 61 Year
  Sex: Female
  Weight: 52 kg

DRUGS (8)
  1. IMATINIB [Suspect]
     Active Substance: IMATINIB
     Indication: CHRONIC MYELOID LEUKAEMIA
     Dosage: 400 MG, QD
     Route: 065
     Dates: start: 20160606
  2. OMEPRAZOLE. [Concomitant]
     Active Substance: OMEPRAZOLE
     Indication: GASTRITIS
  3. ALLOPURINOL. [Concomitant]
     Active Substance: ALLOPURINOL
     Indication: PRODUCT USED FOR UNKNOWN INDICATION
     Route: 065
  4. OMEPRAZOLE. [Concomitant]
     Active Substance: OMEPRAZOLE
     Indication: ULCER
     Dosage: UNK
     Route: 065
     Dates: start: 2012
  5. ONDANSETRON [Concomitant]
     Active Substance: ONDANSETRON
     Indication: VOMITING
     Dosage: 8 MG, UNK
     Route: 065
  6. ZEITE [Suspect]
     Active Substance: IMATINIB MESYLATE
     Indication: PRODUCT USED FOR UNKNOWN INDICATION
     Route: 065
  7. LOVASTATIN. [Concomitant]
     Active Substance: LOVASTATIN
     Indication: BLOOD CHOLESTEROL INCREASED
     Dosage: UNK
     Route: 065
     Dates: start: 2014
  8. BISACODYL. [Concomitant]
     Active Substance: BISACODYL
     Indication: MEGACOLON
     Route: 065

REACTIONS (20)
  - General physical health deterioration [Unknown]
  - Headache [Unknown]
  - Abdominal pain [Unknown]
  - Splenomegaly [Unknown]
  - Pain [Unknown]
  - Bone pain [Unknown]
  - Swelling face [Unknown]
  - Hepatitis [Unknown]
  - Dermatitis allergic [Unknown]
  - Pruritus [Unknown]
  - Drug ineffective [Unknown]
  - Inflammation [Unknown]
  - Gastritis [Unknown]
  - Chronic myeloid leukaemia [Unknown]
  - Pain in extremity [Unknown]
  - Abdominal pain upper [Unknown]
  - Malignant neoplasm progression [Unknown]
  - Asthenia [Unknown]
  - Hypersensitivity [Unknown]
  - Fatigue [Unknown]

NARRATIVE: CASE EVENT DATE: 201608
